FAERS Safety Report 10700743 (Version 1)
Quarter: 2015Q1

REPORT INFORMATION
  Report Type: Spontaneous
  Country: US (occurrence: None)
  Receive Date: 20150108
  Receipt Date: 20150108
  Transmission Date: 20150721
  Serious: Yes (Disabling, Other)
  Sender: FDA-Public Use
  Company Number: None

PATIENT
  Age: 55 Year
  Sex: Female
  Weight: 78.02 kg

DRUGS (10)
  1. INFLAMACX MEDICAL FOOD [Concomitant]
  2. ORGANIC  BOND MINERALS [Concomitant]
  3. HUMULIN/NORDIN INSULIN R + N [Concomitant]
  4. B COMPLEX SUPPLEMENT [Concomitant]
  5. ZINC SUPPLEMENT [Concomitant]
  6. LIVAPLEX [Concomitant]
  7. RELION GLUVCOMETER + TEST STRIPS [Concomitant]
  8. LISINOPRIL 2.5 MG SANDOZ [Suspect]
     Active Substance: LISINOPRIL
     Indication: RENAL DISORDER
     Dosage: BY MOUTH
     Dates: start: 20141113, end: 20141115
  9. LISINOPRIL 2.5 MG SANDOZ [Suspect]
     Active Substance: LISINOPRIL
     Indication: DIABETES MELLITUS
     Dosage: BY MOUTH
     Dates: start: 20141113, end: 20141115
  10. ASPIRIN. [Concomitant]
     Active Substance: ASPIRIN

REACTIONS (5)
  - Dysgeusia [None]
  - Headache [None]
  - Vision blurred [None]
  - Insomnia [None]
  - Presyncope [None]

NARRATIVE: CASE EVENT DATE: 20141113
